FAERS Safety Report 18686527 (Version 1)
Quarter: 2020Q4

REPORT INFORMATION
  Report Type: Spontaneous
  Country: US (occurrence: US)
  Receive Date: 20201230
  Receipt Date: 20201230
  Transmission Date: 20210114
  Serious: Yes (Hospitalization, Other)
  Sender: FDA-Public Use
  Company Number: US-JNJFOC-A-NJ2019-187089

PATIENT
  Age: 69 Year
  Sex: Female
  Weight: 100.23 kg

DRUGS (3)
  1. OPSUMIT [Suspect]
     Active Substance: MACITENTAN
     Indication: PULMONARY ARTERIAL HYPERTENSION
     Dosage: 10 MG, QD
     Route: 048
     Dates: start: 20170822
  2. UPTRAVI [Suspect]
     Active Substance: SELEXIPAG
     Indication: PULMONARY ARTERIAL HYPERTENSION
     Dosage: 1600 MCG, BID
     Route: 048
  3. UPTRAVI [Suspect]
     Active Substance: SELEXIPAG
     Dosage: UNK
     Route: 048

REACTIONS (10)
  - Pleural effusion [Recovered/Resolved]
  - Bedridden [Recovered/Resolved]
  - Breast cancer metastatic [Unknown]
  - Blood calcium decreased [Recovered/Resolved]
  - Cardiac failure congestive [Unknown]
  - Weight decreased [Unknown]
  - Dyspnoea [Recovered/Resolved]
  - Pain [Unknown]
  - Bone cancer [Unknown]
  - Bone cancer metastatic [Unknown]

NARRATIVE: CASE EVENT DATE: 201902
